FAERS Safety Report 4759277-5 (Version None)
Quarter: 2005Q3

REPORT INFORMATION
  Report Type: 
  Country: None (occurrence: None)
  Receive Date: 20050826
  Receipt Date: 20050608
  Transmission Date: 20060218
  Serious: No
  Sender: FDA-Public Use
  Company Number: WAES 0506USA01271

PATIENT
  Age: 57 Year
  Sex: Male

DRUGS (4)
  1. ZETIA [Suspect]
     Dosage: 10 MG/DAILY/PO
     Route: 048
     Dates: start: 20050308
  2. COMBIVIR [Concomitant]
  3. LIPITOR [Concomitant]
  4. VIRAMUNE [Concomitant]

REACTIONS (1)
  - BLOOD HIV RNA INCREASED [None]
